FAERS Safety Report 11030696 (Version 1)
Quarter: 2015Q2

REPORT INFORMATION
  Report Type: Spontaneous
  Country: US (occurrence: None)
  Receive Date: 20150414
  Receipt Date: 20150414
  Transmission Date: 20150821
  Serious: Yes (Hospitalization)
  Sender: FDA-Public Use
  Company Number: None

PATIENT
  Age: 45 Year
  Sex: Male
  Weight: 70.31 kg

DRUGS (10)
  1. CLOZAPINE 100 MG [Suspect]
     Active Substance: CLOZAPINE
     Indication: PRODUCT USED FOR UNKNOWN INDICATION
     Dosage: 3.5 TABLETS
     Route: 048
     Dates: start: 20150315, end: 20150315
  2. CLONAZEPAM. [Concomitant]
     Active Substance: CLONAZEPAM
  3. DOCUSATE [Concomitant]
     Active Substance: DOCUSATE
  4. PYRIDOXINE [Concomitant]
     Active Substance: PYRIDOXINE
  5. VENLAFAXINE [Suspect]
     Active Substance: VENLAFAXINE HYDROCHLORIDE
     Indication: PRODUCT USED FOR UNKNOWN INDICATION
     Dosage: 1 TABLET
     Route: 048
     Dates: start: 20150315, end: 20150315
  6. TRAZODONE [Concomitant]
     Active Substance: TRAZODONE HYDROCHLORIDE
  7. LITHIUM. [Concomitant]
     Active Substance: LITHIUM
  8. FLUOXETINE [Concomitant]
     Active Substance: FLUOXETINE\FLUOXETINE HYDROCHLORIDE
  9. BENZTROPINE [Concomitant]
     Active Substance: BENZTROPINE
  10. QUETIAPINE [Concomitant]
     Active Substance: QUETIAPINE

REACTIONS (7)
  - Drooling [None]
  - Dizziness [None]
  - Wrong patient received medication [None]
  - Bradycardia [None]
  - Sedation [None]
  - Dysarthria [None]
  - Hypotension [None]

NARRATIVE: CASE EVENT DATE: 20150315
